FAERS Safety Report 11821214 (Version 2)
Quarter: 2015Q4

REPORT INFORMATION
  Report Type: Spontaneous
  Country: CY (occurrence: CY)
  Receive Date: 20151210
  Receipt Date: 20151214
  Transmission Date: 20160305
  Serious: Yes (Other)
  Sender: FDA-Public Use
  Company Number: PHHY2015CY158589

PATIENT
  Age: 65 Year
  Sex: Female

DRUGS (1)
  1. ZOMETA [Suspect]
     Active Substance: ZOLEDRONIC ACID
     Indication: PLASMA CELL MYELOMA
     Dosage: UNK
     Route: 042
     Dates: start: 2009, end: 2011

REACTIONS (8)
  - Osteonecrosis of jaw [Not Recovered/Not Resolved]
  - Pain [Unknown]
  - Soft tissue infection [Unknown]
  - Feeding disorder [Unknown]
  - Exposed bone in jaw [Unknown]
  - Bone lesion [Unknown]
  - Osteitis [Unknown]
  - Gingivitis [Unknown]

NARRATIVE: CASE EVENT DATE: 2011
